FAERS Safety Report 9196720 (Version 2)
Quarter: 2013Q2

REPORT INFORMATION
  Report Type: Spontaneous
  Country: AU (occurrence: AU)
  Receive Date: 20130328
  Receipt Date: 20130403
  Transmission Date: 20140414
  Serious: Yes (Death)
  Sender: FDA-Public Use
  Company Number: AU-B.I. PHARMACEUTICALS,INC./RIDGEFIELD-2013-AU-00365AU

PATIENT
  Sex: Female

DRUGS (2)
  1. CATAPRES [Suspect]
     Indication: HYPERTENSION
     Dosage: 50 MCG
  2. DOTHIEPIN [Suspect]
     Indication: DEPRESSION
     Dosage: 150 MG

REACTIONS (2)
  - Completed suicide [Fatal]
  - Drug interaction [Unknown]
